FAERS Safety Report 19845131 (Version 25)
Quarter: 2025Q4

REPORT INFORMATION
  Report Type: Report from Study
  Country: CA (occurrence: CA)
  Receive Date: 20210916
  Receipt Date: 20251114
  Transmission Date: 20260118
  Serious: Yes (Hospitalization, Other)
  Sender: TAKEDA
  Company Number: CA-TAKEDA-2021TUS040408

PATIENT
  Age: 15 Year
  Sex: Male
  Weight: 85 kg

DRUGS (27)
  1. TEDUGLUTIDE [Suspect]
     Active Substance: TEDUGLUTIDE
     Indication: Short-bowel syndrome
     Dosage: 4.6 MILLIGRAM, QD
     Dates: start: 20210617
  2. TEDUGLUTIDE [Suspect]
     Active Substance: TEDUGLUTIDE
     Dosage: 4.6 MILLIGRAM, QD
     Dates: start: 202111
  3. TEDUGLUTIDE [Suspect]
     Active Substance: TEDUGLUTIDE
     Dosage: 4.3 MILLIGRAM, QD
  4. TEDUGLUTIDE [Suspect]
     Active Substance: TEDUGLUTIDE
     Dosage: 4.3 MILLIGRAM, QD
  5. TEDUGLUTIDE [Suspect]
     Active Substance: TEDUGLUTIDE
     Dosage: 4.6 MILLIGRAM, QD
  6. TEDUGLUTIDE [Suspect]
     Active Substance: TEDUGLUTIDE
     Dosage: 4.6 MILLIGRAM, QD
  7. TEDUGLUTIDE [Suspect]
     Active Substance: TEDUGLUTIDE
     Dosage: 4.6 MILLIGRAM, QD
  8. TEDUGLUTIDE [Suspect]
     Active Substance: TEDUGLUTIDE
     Dosage: UNK UNK, QD
  9. TEDUGLUTIDE [Suspect]
     Active Substance: TEDUGLUTIDE
     Dosage: 4 MILLIGRAM, QD
  10. TEDUGLUTIDE [Suspect]
     Active Substance: TEDUGLUTIDE
     Dosage: 4 MILLIGRAM, QD
  11. LOPERAMIDE [Concomitant]
     Active Substance: LOPERAMIDE
     Dosage: 6 MILLIGRAM, TID
  12. KEPPRA [Concomitant]
     Active Substance: LEVETIRACETAM
     Dosage: UNK UNK, BID
  13. KEPPRA [Concomitant]
     Active Substance: LEVETIRACETAM
     Dosage: 1500 MILLIGRAM, QD
  14. KEPPRA [Concomitant]
     Active Substance: LEVETIRACETAM
     Dosage: 2000 MILLIGRAM, QD
  15. VITAMIN D [Concomitant]
     Active Substance: VITAMIN D NOS
     Dosage: 6000 INTERNATIONAL UNIT
  16. VITAMIN C [Concomitant]
     Active Substance: ASCORBIC ACID
     Dosage: 500 MILLIGRAM
  17. POTASSIUM CHLORIDE [Concomitant]
     Active Substance: POTASSIUM CHLORIDE
     Dosage: UNK
  18. LOVENOX [Concomitant]
     Active Substance: ENOXAPARIN SODIUM
     Dosage: 80 MILLIGRAM
  19. TPN [Concomitant]
     Active Substance: AMINO ACIDS\DEXTROSE\ELECTROLYTES NOS\SOYBEAN OIL
     Dosage: 3850 MILLILITER, QD
     Dates: start: 20210921
  20. TPN [Concomitant]
     Active Substance: AMINO ACIDS\DEXTROSE\ELECTROLYTES NOS\SOYBEAN OIL
     Dosage: 3675 MILLILITER, QD
     Dates: start: 20220419
  21. TPN [Concomitant]
     Active Substance: AMINO ACIDS\DEXTROSE\ELECTROLYTES NOS\SOYBEAN OIL
     Dosage: 3450 MILLILITER, QD
     Dates: start: 202206
  22. TPN [Concomitant]
     Active Substance: AMINO ACIDS\DEXTROSE\ELECTROLYTES NOS\SOYBEAN OIL
     Dosage: 3000 MILLILITER, QD
     Dates: start: 20221027
  23. TPN [Concomitant]
     Active Substance: AMINO ACIDS\DEXTROSE\ELECTROLYTES NOS\SOYBEAN OIL
     Dosage: 2800 MILLILITER, QD
     Dates: start: 20221215
  24. TPN [Concomitant]
     Active Substance: AMINO ACIDS\DEXTROSE\ELECTROLYTES NOS\SOYBEAN OIL
     Dosage: 2500 MILLILITER, QD
     Dates: start: 20230209
  25. TPN [Concomitant]
     Active Substance: AMINO ACIDS\DEXTROSE\ELECTROLYTES NOS\SOYBEAN OIL
     Dosage: 3500 MILLILITER, QD
     Dates: start: 20240902
  26. TPN [Concomitant]
     Active Substance: AMINO ACIDS\DEXTROSE\ELECTROLYTES NOS\SOYBEAN OIL
     Dosage: 3000 MILLILITER
  27. KCL [Concomitant]
     Active Substance: POTASSIUM CHLORIDE
     Dosage: 500 MILLILITER, 1/WEEK

REACTIONS (36)
  - Seizure [Recovering/Resolving]
  - Pyrexia [Recovering/Resolving]
  - Fall [Recovering/Resolving]
  - Joint dislocation [Not Recovered/Not Resolved]
  - Wound infection [Recovered/Resolved]
  - Tongue injury [Recovered/Resolved]
  - Urine output decreased [Recovered/Resolved]
  - Stoma complication [Unknown]
  - Gastrointestinal stoma output decreased [Unknown]
  - Thirst decreased [Unknown]
  - Abdominal discomfort [Recovering/Resolving]
  - Blood pressure decreased [Unknown]
  - Dehydration [Unknown]
  - Weight increased [Unknown]
  - Fatigue [Unknown]
  - Faeces discoloured [Unknown]
  - Weight decreased [Unknown]
  - Eating disorder [Unknown]
  - Faeces hard [Recovering/Resolving]
  - Faecal volume increased [Recovered/Resolved]
  - Abnormal faeces [Unknown]
  - Urine output increased [Recovering/Resolving]
  - Pollakiuria [Recovering/Resolving]
  - Dysuria [Recovering/Resolving]
  - Hyperphagia [Recovering/Resolving]
  - Polydipsia [Recovering/Resolving]
  - Weight fluctuation [Recovering/Resolving]
  - Localised infection [Unknown]
  - COVID-19 [Recovering/Resolving]
  - Product dose omission issue [Unknown]
  - Insomnia [Unknown]
  - Abdominal pain upper [Unknown]
  - Decreased appetite [Recovering/Resolving]
  - Oropharyngeal pain [Recovered/Resolved]
  - Cough [Recovered/Resolved]
  - Nasopharyngitis [Recovered/Resolved]

NARRATIVE: CASE EVENT DATE: 20210101
